FAERS Safety Report 8517017-8 (Version None)
Quarter: 2012Q3

REPORT INFORMATION
  Report Type: 
  Country: None (occurrence: None)
  Receive Date: 20120718
  Receipt Date: 20120710
  Transmission Date: 20120928
  Serious: Yes (Hospitalization)
  Sender: FDA-Public Use
  Company Number: US-NOVOPROD-355777

PATIENT
  Age: 69 Year
  Sex: Female
  Weight: 95.692 kg

DRUGS (3)
  1. NOVOLOG [Suspect]
     Indication: TYPE 2 DIABETES MELLITUS
     Dosage: 52UAM, 46U LUNCH, 50U PM
     Route: 058
     Dates: start: 20110101
  2. LANTUS [Concomitant]
     Indication: TYPE 2 DIABETES MELLITUS
     Dosage: 60 U, QD IN THE AM
     Route: 058
  3. LYRICA [Concomitant]
     Indication: PAIN IN EXTREMITY
     Dosage: 50 MG, UNK
     Route: 048

REACTIONS (2)
  - INCORRECT STORAGE OF DRUG [None]
  - DYSPNOEA [None]
